FAERS Safety Report 21220635 (Version 1)
Quarter: 2022Q3

REPORT INFORMATION
  Report Type: Spontaneous
  Country: FR (occurrence: FR)
  Receive Date: 20220817
  Receipt Date: 20220817
  Transmission Date: 20221026
  Serious: Yes (Life-Threatening)
  Sender: FDA-Public Use
  Company Number: FR-SUN PHARMACEUTICAL INDUSTRIES LTD-2022RR-348531

PATIENT
  Age: 35 Year
  Sex: Male
  Weight: 70 kg

DRUGS (6)
  1. QUETIAPINE [Interacting]
     Active Substance: QUETIAPINE
     Indication: Psychotic disorder
     Dosage: 950 MILLIGRAM, DAILY
     Route: 048
     Dates: end: 20211208
  2. MILNACIPRAN HYDROCHLORIDE [Interacting]
     Active Substance: MILNACIPRAN HYDROCHLORIDE
     Indication: Psychotic disorder
     Dosage: 25 MILLIGRAM, DAILY
     Route: 048
     Dates: end: 20211208
  3. VALIUM [Interacting]
     Active Substance: DIAZEPAM
     Indication: Psychotic disorder
     Dosage: 30 MILLIGRAM, DAILY
     Route: 048
     Dates: end: 20211208
  4. LOXAPINE [Interacting]
     Active Substance: LOXAPINE
     Indication: Psychotic disorder
     Dosage: 50 MILLIGRAM, 1 DOSE AS NECESSARY
     Route: 048
     Dates: end: 20211208
  5. LEVOMEPROMAZINE [Interacting]
     Active Substance: LEVOMEPROMAZINE
     Indication: Psychotic disorder
     Dosage: 87.5 MILLIGRAM, DAILY
     Route: 048
     Dates: end: 20211208
  6. VALPROATE SODIUM [Interacting]
     Active Substance: VALPROATE SODIUM
     Indication: Psychotic disorder
     Dosage: 1 GRAM, DAILY
     Route: 048
     Dates: end: 20211208

REACTIONS (2)
  - Drug interaction [Recovered/Resolved]
  - Intestinal obstruction [Recovered/Resolved]

NARRATIVE: CASE EVENT DATE: 20211208
